FAERS Safety Report 10394686 (Version 1)
Quarter: 2014Q3

REPORT INFORMATION
  Report Type: Spontaneous
  Country: US (occurrence: US)
  Receive Date: 20140820
  Receipt Date: 20140820
  Transmission Date: 20150326
  Serious: Yes (Other)
  Sender: FDA-Public Use
  Company Number: US-AMGEN-USASP2014062163

PATIENT
  Age: 73 Year
  Sex: Female

DRUGS (2)
  1. CALCIUM [Concomitant]
     Active Substance: CALCIUM
  2. PROLIA [Suspect]
     Active Substance: DENOSUMAB
     Indication: OSTEOPOROSIS POSTMENOPAUSAL
     Dosage: UNK
     Route: 065
     Dates: start: 201311

REACTIONS (10)
  - Gastric ulcer [Unknown]
  - Back pain [Unknown]
  - Dysstasia [Unknown]
  - Blood pressure abnormal [Unknown]
  - Arthralgia [Unknown]
  - Anaemia [Unknown]
  - Pain in extremity [Unknown]
  - Gait disturbance [Unknown]
  - Asthma [Unknown]
  - Insomnia [Unknown]
